FAERS Safety Report 5755495-8 (Version None)
Quarter: 2008Q2

REPORT INFORMATION
  Report Type: 
  Country: None (occurrence: None)
  Receive Date: 20080530
  Receipt Date: 20080530
  Transmission Date: 20081010
  Serious: Yes (Hospitalization)
  Sender: FDA-Public Use
  Company Number: None

PATIENT
  Sex: Female
  Weight: 83 kg

DRUGS (2)
  1. CLOLAR [Suspect]
     Dosage: 360 MG
  2. CYTARABINE [Suspect]
     Dosage: 1800 MG

REACTIONS (13)
  - ABDOMINAL PAIN [None]
  - AGITATION [None]
  - DIARRHOEA [None]
  - DYSPNOEA [None]
  - ERYTHEMA [None]
  - HYPOALBUMINAEMIA [None]
  - HYPOTENSION [None]
  - OEDEMA PERIPHERAL [None]
  - PAIN [None]
  - PALMAR-PLANTAR ERYTHRODYSAESTHESIA SYNDROME [None]
  - RENAL FAILURE ACUTE [None]
  - SEPTIC SHOCK [None]
  - TRANSAMINASES INCREASED [None]
